FAERS Safety Report 18073664 (Version 1)
Quarter: 2020Q3

REPORT INFORMATION
  Report Type: Spontaneous
  Country: GB (occurrence: GB)
  Receive Date: 20200727
  Receipt Date: 20200727
  Transmission Date: 20201103
  Serious: Yes (Life-Threatening)
  Sender: FDA-Public Use
  Company Number: GB-MYLANLABS-2020M1066338

PATIENT
  Age: 27 Year
  Sex: Male
  Weight: 70 kg

DRUGS (33)
  1. DEXMEDETOMIDINE. [Concomitant]
     Active Substance: DEXMEDETOMIDINE
     Dosage: UNK
  2. THIAMINE. [Concomitant]
     Active Substance: THIAMINE
     Dosage: 300 MILLIGRAM, QD
  3. MAGNESIUM SULFATE. [Concomitant]
     Active Substance: MAGNESIUM SULFATE
     Dosage: UNK UNK, PRN
     Route: 042
  4. PANCREX [Concomitant]
     Dosage: POWDER (AS AN ALTERNATIVE TO CREON DUE TO SWALLOWING PROBLEMS)
  5. TERLIPRESSIN [Concomitant]
     Active Substance: TERLIPRESSIN
     Dosage: UNK
  6. CIPROFLOXACIN. [Suspect]
     Active Substance: CIPROFLOXACIN
     Indication: ABDOMINAL SEPSIS
     Dosage: 800 MILLIGRAM, QD
     Route: 042
     Dates: start: 20200615, end: 20200624
  7. FERROUS SULFATE. [Concomitant]
     Active Substance: FERROUS SULFATE
     Dosage: 600 MILLIGRAM, QD
  8. NOREPINEPHRINE. [Concomitant]
     Active Substance: NOREPINEPHRINE
     Dosage: UNK
  9. ACETYLCYSTEINE. [Concomitant]
     Active Substance: ACETYLCYSTEINE
     Dosage: UNK
  10. OMEPRAZOLE. [Concomitant]
     Active Substance: OMEPRAZOLE
     Dosage: 40 MILLIGRAM, QD
  11. CEFTRIAXONE. [Concomitant]
     Active Substance: CEFTRIAXONE
     Dosage: 1 GRAM, QD
  12. PHENYTOIN. [Concomitant]
     Active Substance: PHENYTOIN
     Dosage: LOADING DOSE
     Dates: start: 20200622
  13. MAGNASPARTATE [Concomitant]
     Dosage: UNK
  14. ALFENTANIL HYDROCHLORIDE. [Concomitant]
     Active Substance: ALFENTANIL HYDROCHLORIDE
     Dosage: UNK
  15. RIFAXIMIN. [Concomitant]
     Active Substance: RIFAXIMIN
     Dosage: 1100 MILLIGRAM, QD
  16. MIRTAZAPINE. [Concomitant]
     Active Substance: MIRTAZAPINE
     Dosage: 30 MILLIGRAM, QD AT NIGHT
  17. FOLIC ACID. [Concomitant]
     Active Substance: FOLIC ACID
     Dosage: 5 MILLIGRAM, QD
  18. FUROSEMIDE. [Concomitant]
     Active Substance: FUROSEMIDE
     Dosage: VARIOUS STAT DOSES
  19. TINZAPARIN [Concomitant]
     Active Substance: TINZAPARIN
     Dosage: 3500 INTERNATIONAL UNIT, QD
  20. PARACETAMOL [Concomitant]
     Active Substance: ACETAMINOPHEN
     Dosage: UNK
     Route: 048
  21. FLUCONAZOLE. [Concomitant]
     Active Substance: FLUCONAZOLE
     Dosage: 200 MILLIGRAM, QD
     Route: 042
  22. LINEZOLID. [Concomitant]
     Active Substance: LINEZOLID
     Dosage: 1200 MILLIGRAM, QD
  23. LACTULOSE. [Concomitant]
     Active Substance: LACTULOSE
     Dosage: UNK
  24. MACROGOL [Concomitant]
     Active Substance: POLYETHYLENE GLYCOLS
     Dosage: UNK
  25. PARACETAMOL [Concomitant]
     Active Substance: ACETAMINOPHEN
     Dosage: UNK
     Route: 042
  26. PROPOFOL. [Concomitant]
     Active Substance: PROPOFOL
     Dosage: UNK
  27. HALOPERIDOL. [Suspect]
     Active Substance: HALOPERIDOL
     Indication: DELIRIUM
     Dosage: 2.5 MILLIGRAM, PRN 2?4 HOURLY
     Route: 042
     Dates: start: 20200624
  28. METRONIDAZOLE. [Concomitant]
     Active Substance: METRONIDAZOLE
     Dosage: UNK
  29. MEROPENEM. [Concomitant]
     Active Substance: MEROPENEM
     Dosage: 2 GRAM, QD
  30. PHYTOMENADIONE [Concomitant]
     Active Substance: PHYTONADIONE
     Dosage: SEVERAL STAT DOSES
     Route: 042
  31. OLANZAPINE. [Suspect]
     Active Substance: OLANZAPINE
     Indication: DELIRIUM
     Dosage: 10 MILLIGRAM, QD AT NIGHT
     Route: 048
     Dates: start: 20200623
  32. CASPOFUNGIN [Concomitant]
     Active Substance: CASPOFUNGIN
     Dosage: 35 MILLIGRAM, QD
  33. LORAZEPAM. [Concomitant]
     Active Substance: LORAZEPAM
     Dosage: 1?2MG, PRN

REACTIONS (2)
  - Blood potassium decreased [Unknown]
  - Electrocardiogram QT prolonged [Recovering/Resolving]

NARRATIVE: CASE EVENT DATE: 20200624
